FAERS Safety Report 24042229 (Version 1)
Quarter: 2024Q3

REPORT INFORMATION
  Report Type: Spontaneous
  Country: US (occurrence: None)
  Receive Date: 20240702
  Receipt Date: 20240702
  Transmission Date: 20241016
  Serious: Yes (Hospitalization)
  Sender: Public
  Company Number: None

PATIENT
  Sex: Female

DRUGS (2)
  1. HUMIRA [Suspect]
     Active Substance: ADALIMUMAB
     Dosage: ?FREQUENCY : AS DIRECTED?
     Route: 058
     Dates: start: 202406
  2. KYLEENA [Concomitant]
     Active Substance: LEVONORGESTREL

REACTIONS (3)
  - Clostridium difficile colitis [None]
  - Arthralgia [None]
  - Joint swelling [None]
